FAERS Safety Report 10993611 (Version 1)
Quarter: 2015Q2

REPORT INFORMATION
  Report Type: Spontaneous
  Country: US (occurrence: None)
  Receive Date: 20150406
  Receipt Date: 20150406
  Transmission Date: 20150821
  Serious: Yes (Disabling)
  Sender: FDA-Public Use
  Company Number: None

PATIENT
  Age: 68 Year
  Sex: Female
  Weight: 55.34 kg

DRUGS (7)
  1. PROBIOTICS [Concomitant]
     Active Substance: PROBIOTICS NOS
  2. OSPHENA [Suspect]
     Active Substance: OSPEMIFENE
     Indication: VULVOVAGINAL DRYNESS
     Dosage: 1 PILLS, ONCE DAILY, TAKEN BY MOUTH
     Route: 048
     Dates: start: 20140623, end: 20141201
  3. SYNTHROYOID [Concomitant]
  4. VITAMINS [Concomitant]
     Active Substance: VITAMINS
  5. D3 [Concomitant]
     Active Substance: 25-HYDROXYCHOLECALCIFEROL, 5-TRANS-
  6. FISH OIL [Concomitant]
     Active Substance: FISH OIL
  7. OSTEOBIOFLEX [Concomitant]

REACTIONS (2)
  - Varicose vein [None]
  - Osteoarthritis [None]
